FAERS Safety Report 16730921 (Version 3)
Quarter: 2019Q3

REPORT INFORMATION
  Report Type: Spontaneous
  Country: CN (occurrence: CN)
  Receive Date: 20190822
  Receipt Date: 20190904
  Transmission Date: 20191005
  Serious: Yes (Other)
  Sender: FDA-Public Use
  Company Number: CN-ASTRAZENECA-2019SF18762

PATIENT
  Age: 67 Year
  Sex: Female

DRUGS (5)
  1. TAGRISSO [Suspect]
     Active Substance: OSIMERTINIB
     Indication: LUNG ADENOCARCINOMA
     Route: 048
     Dates: end: 20190812
  2. GEFITINIB. [Suspect]
     Active Substance: GEFITINIB
     Indication: LUNG ADENOCARCINOMA
     Route: 048
  3. GEFITINIB. [Suspect]
     Active Substance: GEFITINIB
     Indication: EGFR GENE MUTATION
     Route: 048
  4. GEFITINIB. [Suspect]
     Active Substance: GEFITINIB
     Indication: LUNG ADENOCARCINOMA
     Route: 048
     Dates: start: 201901, end: 201908
  5. GEFITINIB. [Suspect]
     Active Substance: GEFITINIB
     Indication: EGFR GENE MUTATION
     Route: 048
     Dates: start: 201901, end: 201908

REACTIONS (4)
  - Cerebral haemorrhage [Unknown]
  - Drug resistance [Unknown]
  - Malignant neoplasm progression [Unknown]
  - Metastases to central nervous system [Unknown]

NARRATIVE: CASE EVENT DATE: 201907
